FAERS Safety Report 7337627-3 (Version None)
Quarter: 2011Q1

REPORT INFORMATION
  Report Type: 
  Country: None (occurrence: None)
  Receive Date: 20110308
  Receipt Date: 20110301
  Transmission Date: 20110831
  Serious: Yes (Hospitalization, Other)
  Sender: FDA-Public Use
  Company Number: US-BAYER-2011-019652

PATIENT
  Sex: Female

DRUGS (1)
  1. MIRENA [Suspect]
     Dosage: DAILY DOSE 20 MCG/24HR
     Route: 015
     Dates: start: 20090501

REACTIONS (1)
  - SYSTEMIC LUPUS ERYTHEMATOSUS [None]
